FAERS Safety Report 17286347 (Version 3)
Quarter: 2020Q1

REPORT INFORMATION
  Report Type: Report from Study
  Country: US (occurrence: US)
  Receive Date: 20200118
  Receipt Date: 20200310
  Transmission Date: 20200409
  Serious: Yes (Other)
  Sender: FDA-Public Use
  Company Number: NVSC2020US009088

PATIENT
  Sex: Female

DRUGS (2)
  1. PIQRAY [Suspect]
     Active Substance: ALPELISIB
     Indication: PRODUCT USED FOR UNKNOWN INDICATION
     Route: 048
  2. PIQRAY [Suspect]
     Active Substance: ALPELISIB
     Route: 048

REACTIONS (9)
  - Blood creatinine increased [Unknown]
  - Dehydration [Unknown]
  - Nephrolithiasis [Unknown]
  - Hypotension [Unknown]
  - Constipation [Unknown]
  - Diarrhoea [Unknown]
  - Pleural effusion [Unknown]
  - Metastases to lung [Unknown]
  - Pain [Unknown]
